FAERS Safety Report 21242274 (Version 1)
Quarter: 2022Q3

REPORT INFORMATION
  Report Type: Spontaneous
  Country: CN (occurrence: CN)
  Receive Date: 20220823
  Receipt Date: 20220823
  Transmission Date: 20221027
  Serious: Yes (Other)
  Sender: FDA-Public Use
  Company Number: None

PATIENT
  Age: 47 Year
  Sex: Female
  Weight: 55 kg

DRUGS (4)
  1. CYCLOPHOSPHAMIDE [Suspect]
     Active Substance: CYCLOPHOSPHAMIDE
     Indication: Breast cancer female
     Dosage: 800MG, ONCE DAILY, DILUTED WITH 0.9% SODIUM CHLORIDE INJECTION (100ML)
     Route: 041
     Dates: start: 20220722, end: 20220722
  2. SODIUM CHLORIDE [Suspect]
     Active Substance: SODIUM CHLORIDE
     Indication: Medication dilution
     Dosage: 100ML ONCE DAILY, DILUTED WITH CYCLOPHOSPHAMIDE
     Route: 041
     Dates: start: 20220722, end: 20220722
  3. SODIUM CHLORIDE [Suspect]
     Active Substance: SODIUM CHLORIDE
     Dosage: 50 ML, ONCE A DAY, DILUTED WITH EPIRUBICIN HYDROCHLORIDE (AIDASHENG)
     Route: 041
     Dates: start: 20220722, end: 20220722
  4. EPIRUBICIN HYDROCHLORIDE [Suspect]
     Active Substance: EPIRUBICIN HYDROCHLORIDE
     Indication: Breast cancer female
     Dosage: 120 MG, ONCE DAILY, DILUTED WITH 0.9% SODIUM CHLORIDE INJECTION (50ML)
     Route: 041
     Dates: start: 20220722, end: 20220722

REACTIONS (4)
  - Gastrointestinal disorder [Recovering/Resolving]
  - Nausea [Recovering/Resolving]
  - Vomiting [Recovering/Resolving]
  - Decreased appetite [Recovering/Resolving]

NARRATIVE: CASE EVENT DATE: 20220723
